FAERS Safety Report 9699590 (Version 3)
Quarter: 2014Q1

REPORT INFORMATION
  Report Type: Spontaneous
  Country: US (occurrence: US)
  Receive Date: 20131120
  Receipt Date: 20140206
  Transmission Date: 20141002
  Serious: Yes (Hospitalization)
  Sender: FDA-Public Use
  Company Number: US-GILEAD-2013-0086699

PATIENT
  Sex: Female
  Weight: 112.47 kg

DRUGS (1)
  1. LETAIRIS [Suspect]
     Indication: PULMONARY ARTERIAL HYPERTENSION
     Dosage: 5 MG, QD
     Route: 048
     Dates: start: 20130712

REACTIONS (6)
  - Wheezing [Unknown]
  - Cough [Unknown]
  - Gait disturbance [Unknown]
  - Dyspnoea [Unknown]
  - Generalised oedema [Recovering/Resolving]
  - Fluid retention [Unknown]
